FAERS Safety Report 9483218 (Version 1)
Quarter: 2013Q3

REPORT INFORMATION
  Report Type: Spontaneous
  Country: US (occurrence: US)
  Receive Date: 20130828
  Receipt Date: 20130828
  Transmission Date: 20140515
  Serious: Yes (Other)
  Sender: FDA-Public Use
  Company Number: US-PERRIGO-13US008742

PATIENT
  Age: 7 Year
  Sex: Female
  Weight: 19.05 kg

DRUGS (1)
  1. IBUPROFEN 100MG JR GRAPE CHEWABLE 521 [Suspect]
     Indication: EAR PAIN
     Dosage: 150 MG, ONCE
     Route: 048
     Dates: start: 20130811, end: 20130811

REACTIONS (4)
  - Anaphylactic reaction [Recovered/Resolved]
  - Anaphylactic shock [Recovered/Resolved]
  - Throat irritation [Recovered/Resolved]
  - Pruritus [Recovered/Resolved]
